FAERS Safety Report 9842743 (Version 1)
Quarter: 2014Q1

REPORT INFORMATION
  Report Type: Spontaneous
  Country: FR (occurrence: FR)
  Receive Date: 20140124
  Receipt Date: 20140124
  Transmission Date: 20141002
  Serious: Yes (Hospitalization)
  Sender: FDA-Public Use
  Company Number: FR-TEVA-457959USA

PATIENT
  Age: 67 Year
  Sex: Female
  Weight: 68 kg

DRUGS (2)
  1. LEVACT [Suspect]
     Indication: LYMPHOCYTIC LYMPHOMA
     Dosage: TOTAL DOSE
     Route: 042
     Dates: start: 20131217, end: 20131218
  2. MABTHERA [Suspect]
     Indication: LYMPHOCYTIC LYMPHOMA
     Dosage: TOTAL DOSE
     Route: 042
     Dates: start: 20131217, end: 20131217

REACTIONS (5)
  - Eyelid oedema [Recovered/Resolved]
  - Eosinophilia [Unknown]
  - Pyrexia [Recovered/Resolved]
  - Rash erythematous [Recovered/Resolved]
  - Pruritus [Recovered/Resolved]
